FAERS Safety Report 4775354-7 (Version None)
Quarter: 2005Q3

REPORT INFORMATION
  Report Type: 
  Country: None (occurrence: None)
  Receive Date: 20050920
  Receipt Date: 20050909
  Transmission Date: 20060218
  Serious: Yes (Other)
  Sender: FDA-Public Use
  Company Number: 200513637BCC

PATIENT
  Age: 50 Year
  Sex: Female
  Weight: 120.2032 kg

DRUGS (3)
  1. GENUINE BAYER TABLETS (ACETYLSALICYLIC ACID) [Suspect]
     Dosage: 1950 MG, BID, ORAL; 1950 MG, IRR, ORAL; 325 MG, QD, ORAL
     Route: 048
     Dates: start: 19990101
  2. GENUINE BAYER TABLETS (ACETYLSALICYLIC ACID) [Suspect]
     Dosage: 1950 MG, BID, ORAL; 1950 MG, IRR, ORAL; 325 MG, QD, ORAL
     Route: 048
     Dates: start: 20050826
  3. SYNTHROID [Concomitant]

REACTIONS (3)
  - CEREBROVASCULAR ACCIDENT [None]
  - MEDICATION ERROR [None]
  - MYOCARDIAL INFARCTION [None]
